FAERS Safety Report 7811894-1 (Version None)
Quarter: 2011Q4

REPORT INFORMATION
  Report Type: 
  Country: None (occurrence: None)
  Receive Date: 20111013
  Receipt Date: 20111004
  Transmission Date: 20120403
  Serious: Yes (Life-Threatening)
  Sender: FDA-Public Use
  Company Number: PHHY2011JP88167

PATIENT
  Sex: Male

DRUGS (34)
  1. HALCION [Concomitant]
     Dosage: 0.25 MG, DAILY
     Route: 048
     Dates: start: 20110927, end: 20111003
  2. TOFRANIL [Concomitant]
     Dosage: 30 MG, DAILY
     Route: 048
     Dates: start: 20110927
  3. LOXONIN [Concomitant]
     Dosage: UNK UKN, UNK
     Route: 048
     Dates: start: 20110927
  4. MAGNESIUM OXIDE [Concomitant]
     Dosage: 1 G, DAILY
     Route: 048
     Dates: start: 20111001
  5. MUCODYNE [Concomitant]
     Dosage: 1000 MG, DAILY
     Route: 048
  6. SEISHOKU [Concomitant]
     Dosage: 20 ML, DAILY
     Dates: start: 20111002
  7. TRANEXAMIC ACID [Concomitant]
     Dosage: 1 G, DAILY
     Dates: start: 20111003
  8. TASIGNA [Suspect]
     Indication: CHRONIC MYELOID LEUKAEMIA
     Dosage: 150 MG, QD
     Route: 048
     Dates: start: 20111003, end: 20111003
  9. ACETAMINOPHEN [Concomitant]
     Dosage: UNK UKN, UNK
     Dates: start: 20110928
  10. TPN ELECTROLYTES IN PLASTIC CONTAINER [Concomitant]
     Dosage: 500 ML, DAILY
     Dates: start: 20110927, end: 20111003
  11. NOVO HEPARIN [Concomitant]
     Dosage: 10000 IU, DAILY
     Dates: start: 20110927
  12. PURSENNID [Concomitant]
     Dosage: UNK UKN, UNK
     Dates: start: 20110928
  13. MEILAX [Concomitant]
     Dosage: 1 MG, DAILY
     Route: 048
     Dates: start: 20110927
  14. HYDREA [Concomitant]
     Dosage: 1500 MG, DAILY
     Dates: start: 20111002, end: 20111003
  15. HARTMAN G-3 [Concomitant]
     Dosage: 500 ML, DAILY
     Dates: start: 20110927, end: 20111003
  16. PREDNISOLONE [Concomitant]
     Dosage: 60 MG, DAILY
     Dates: start: 20111002, end: 20111003
  17. HYDREA [Concomitant]
     Dosage: 1000 MG, DAILY
     Route: 048
     Dates: start: 20110928, end: 20111001
  18. LENDORMIN [Concomitant]
     Dosage: UNK UKN, UNK
     Route: 048
     Dates: start: 20111001
  19. SULFAMETHOXAZOLE [Concomitant]
     Dosage: 2 DF, DAILY
     Route: 048
     Dates: start: 20111002, end: 20111003
  20. FAMOTIDINE [Concomitant]
     Dosage: 20 MG, DAILY
     Dates: start: 20110927, end: 20111003
  21. SODIUM CHLORIDE SOLUTION [Concomitant]
     Dosage: 500 MG, DAILY
     Dates: start: 20110927
  22. SEISHOKU [Concomitant]
     Dosage: 10 ML, DAILY
  23. SEISHOKU [Concomitant]
     Dosage: 100 ML, DAILY
     Dates: start: 20111002, end: 20111004
  24. MEILAX [Concomitant]
     Dosage: 1 MG, DAILY
  25. ADONA [Concomitant]
     Dosage: 100 MG, DAILY
     Dates: start: 20111003
  26. DEXALTIN [Concomitant]
     Dosage: UNK UKN, UNK
  27. FUNGUARD [Concomitant]
     Dosage: 150 MG, UNK
     Dates: start: 20111002, end: 20111004
  28. SILECE [Concomitant]
     Dosage: 2 MG, DAILY
     Route: 048
     Dates: start: 20110927, end: 20111002
  29. TOFRANIL [Concomitant]
     Dosage: 10 MG, DAILY
     Route: 048
  30. ALLOPURINOL [Concomitant]
     Dosage: 200 MG, DAILY
     Route: 048
     Dates: start: 20110927, end: 20111003
  31. LAXOBERON [Concomitant]
     Dosage: UNK UKN, UNK
     Dates: start: 20110929
  32. PACIL [Concomitant]
     Dosage: 1000 MG, DAILY
     Dates: start: 20111002
  33. ZOLPIDEM [Concomitant]
     Dosage: 5 MG, DAILY
     Route: 048
     Dates: start: 20110927, end: 20111003
  34. MUCODYNE [Concomitant]
     Dosage: 1500 MG, DAILY
     Route: 048
     Dates: start: 20111001

REACTIONS (3)
  - COMA [None]
  - ACIDOSIS [None]
  - HYPERGLYCAEMIA [None]
